FAERS Safety Report 13251481 (Version 1)
Quarter: 2017Q1

REPORT INFORMATION
  Report Type: Report from Study
  Country: US (occurrence: US)
  Receive Date: 20170220
  Receipt Date: 20170220
  Transmission Date: 20170428
  Serious: Yes (Other)
  Sender: FDA-Public Use
  Company Number: US-ROCHE-1896067

PATIENT
  Age: 6 Day
  Sex: Female
  Weight: 2.32 kg

DRUGS (3)
  1. ALTEPLASE [Suspect]
     Active Substance: ALTEPLASE
     Indication: RENAL VEIN THROMBOSIS
     Dosage: MINIMUM DOSE OF 0.01MG/KG AND TITRATED SLOWLY TO A MAXIMUM DOSE OF 0.06MG/KG/H
     Route: 042
  2. LOW MOLECULAR WEIGHT HEPARIN [Concomitant]
     Active Substance: UNSPECIFIED INGREDIENT
     Indication: ANTICOAGULANT THERAPY
     Route: 065
  3. HEPARIN [Concomitant]
     Active Substance: HEPARIN SODIUM
     Indication: ANTICOAGULANT THERAPY
     Route: 065

REACTIONS (4)
  - Hypertension [Unknown]
  - Renal atrophy [Unknown]
  - Acute kidney injury [Unknown]
  - Anuria [Unknown]
